FAERS Safety Report 24705431 (Version 1)
Quarter: 2024Q4

REPORT INFORMATION
  Report Type: Spontaneous
  Country: TR (occurrence: TR)
  Receive Date: 20241206
  Receipt Date: 20241206
  Transmission Date: 20250114
  Serious: Yes (Other)
  Sender: RANBAXY
  Company Number: TR-SUN PHARMACEUTICAL INDUSTRIES LTD-2024R1-483237

PATIENT
  Age: 25 Year
  Sex: Female

DRUGS (12)
  1. LEVOFLOXACIN [Suspect]
     Active Substance: LEVOFLOXACIN
     Indication: COVID-19
     Dosage: UNK
     Route: 065
  2. ENOXAPARIN SODIUM [Suspect]
     Active Substance: ENOXAPARIN SODIUM
     Indication: COVID-19
     Dosage: UNK
     Route: 065
  3. FAMOTIDINE [Suspect]
     Active Substance: FAMOTIDINE
     Indication: COVID-19
     Dosage: UNK
     Route: 065
  4. ACETAMINOPHEN [Suspect]
     Active Substance: ACETAMINOPHEN
     Indication: COVID-19
     Dosage: UNK
     Route: 065
  5. BUDESONIDE [Suspect]
     Active Substance: BUDESONIDE
     Indication: COVID-19
     Dosage: UNK
     Route: 065
  6. DORNASE ALFA [Suspect]
     Active Substance: DORNASE ALFA
     Indication: COVID-19
     Dosage: UNK
     Route: 065
  7. FAVIPIRAVIR [Suspect]
     Active Substance: FAVIPIRAVIR
     Dosage: UNK
     Route: 065
  8. FAVIPIRAVIR [Suspect]
     Active Substance: FAVIPIRAVIR
     Indication: COVID-19
  9. FAVIPIRAVIR [Suspect]
     Active Substance: FAVIPIRAVIR
  10. ASCORBIC ACID [Suspect]
     Active Substance: ASCORBIC ACID
     Dosage: UNK
     Route: 065
  11. ASCORBIC ACID [Suspect]
     Active Substance: ASCORBIC ACID
     Indication: COVID-19
  12. ASCORBIC ACID [Suspect]
     Active Substance: ASCORBIC ACID

REACTIONS (2)
  - Exposure during pregnancy [Unknown]
  - Abortion induced [Unknown]
